FAERS Safety Report 17192902 (Version 2)
Quarter: 2020Q1

REPORT INFORMATION
  Report Type: Report from Study
  Country: KR (occurrence: KR)
  Receive Date: 20191223
  Receipt Date: 20200120
  Transmission Date: 20200409
  Serious: Yes (Death, Hospitalization)
  Sender: FDA-Public Use
  Company Number: KR-B.I. PHARMACEUTICALS,INC./RIDGEFIELD-2019-BI-121479

PATIENT
  Age: 83 Year
  Sex: Male
  Weight: 50 kg

DRUGS (9)
  1. PRIMALAN [Concomitant]
     Active Substance: MEQUITAZINE
     Indication: RASH
     Route: 065
     Dates: start: 20180927
  2. GILOTRIF [Suspect]
     Active Substance: AFATINIB
     Route: 048
     Dates: start: 20180629, end: 20190226
  3. MEGESTROL [Concomitant]
     Active Substance: MEGESTROL
     Indication: PROPHYLAXIS
     Dosage: SUSP PACK
     Route: 065
     Dates: start: 20180712
  4. CODAEWON FORTE [Concomitant]
     Indication: CHRONIC OBSTRUCTIVE PULMONARY DISEASE
     Dates: start: 20180607
  5. ELDO [Concomitant]
     Indication: CHRONIC OBSTRUCTIVE PULMONARY DISEASE
     Route: 065
     Dates: start: 20180607
  6. XOTERNA [Concomitant]
     Indication: CHRONIC OBSTRUCTIVE PULMONARY DISEASE
     Dosage: 1 PUFF
     Route: 065
     Dates: start: 20180518
  7. LOPMIN [Concomitant]
     Indication: DIARRHOEA
     Dosage: 2 CAP
     Route: 065
     Dates: start: 20180830
  8. GILOTRIF [Suspect]
     Active Substance: AFATINIB
     Indication: NON-SMALL CELL LUNG CANCER
     Route: 048
     Dates: start: 20180615, end: 20180628
  9. MEGESTROL [Concomitant]
     Active Substance: MEGESTROL
     Indication: DECREASED APPETITE

REACTIONS (3)
  - Hydrocephalus [Not Recovered/Not Resolved]
  - Pneumonitis [Recovered/Resolved]
  - Death [Fatal]

NARRATIVE: CASE EVENT DATE: 20180628
